FAERS Safety Report 7121918-5 (Version None)
Quarter: 2010Q4

REPORT INFORMATION
  Report Type: 
  Country: None (occurrence: None)
  Receive Date: 20101124
  Receipt Date: 20101117
  Transmission Date: 20110411
  Serious: Yes (Death, Hospitalization)
  Sender: FDA-Public Use
  Company Number: A0894269A

PATIENT
  Sex: Female

DRUGS (1)
  1. ARZERRA [Suspect]
     Route: 065
     Dates: end: 20100701

REACTIONS (3)
  - DEATH [None]
  - GENERAL PHYSICAL HEALTH DETERIORATION [None]
  - HEPATITIS B [None]
